FAERS Safety Report 5991093-9 (Version None)
Quarter: 2008Q4

REPORT INFORMATION
  Report Type: 
  Country: None (occurrence: None)
  Receive Date: 20081202
  Receipt Date: 20080509
  Transmission Date: 20090506
  Serious: Yes (Other)
  Sender: FDA-Public Use
  Company Number: WAES 0805USA02126

PATIENT
  Age: 50 Year
  Sex: Female

DRUGS (2)
  1. FOSAMAX [Suspect]
     Indication: OSTEOPOROSIS
     Dosage: 70 MG/DAILY/PO
     Route: 048
     Dates: start: 20000601, end: 20060601
  2. HORMONES [Concomitant]

REACTIONS (2)
  - LOOSE TOOTH [None]
  - OSTEONECROSIS [None]
